FAERS Safety Report 8234162-5 (Version None)
Quarter: 2012Q1

REPORT INFORMATION
  Report Type: 
  Country: None (occurrence: None)
  Receive Date: 20120326
  Receipt Date: 20120316
  Transmission Date: 20120608
  Serious: Yes (Hospitalization)
  Sender: FDA-Public Use
  Company Number: US-GENZYME-CERZ-1002434

PATIENT
  Sex: Male
  Weight: 65 kg

DRUGS (1)
  1. CEREZYME [Suspect]
     Indication: GAUCHER'S DISEASE
     Dosage: 2800 U, Q2W
     Route: 042
     Dates: start: 20001027

REACTIONS (1)
  - BLOOD ELECTROLYTES ABNORMAL [None]
